FAERS Safety Report 5376564-0 (Version None)
Quarter: 2007Q3

REPORT INFORMATION
  Report Type: 
  Country: None (occurrence: None)
  Receive Date: 20070702
  Receipt Date: 20070625
  Transmission Date: 20080115
  Serious: Yes (Other)
  Sender: FDA-Public Use
  Company Number: PT-GENENTECH-240056

PATIENT
  Sex: Male
  Weight: 55 kg

DRUGS (5)
  1. RITUXIMAB [Suspect]
     Indication: B-CELL LYMPHOMA
     Dosage: 375 MG/M2, Q3W
     Route: 042
     Dates: start: 20060602
  2. CYCLOPHOSPHAMIDE [Concomitant]
     Indication: B-CELL LYMPHOMA
     Dosage: 1192.5 MG, Q3W
     Route: 042
     Dates: start: 20060602
  3. ADRIAMYCIN PFS [Concomitant]
     Indication: B-CELL LYMPHOMA
     Dosage: 79.5 MG, Q3W
     Route: 042
     Dates: start: 20060602
  4. VINCRISTINE [Concomitant]
     Indication: B-CELL LYMPHOMA
     Dosage: 2 MG, Q3W
     Route: 042
     Dates: start: 20060602
  5. PREDNISOLONE [Concomitant]
     Indication: B-CELL LYMPHOMA
     Dosage: 100 MG, QDX5D/21DC
     Route: 048
     Dates: start: 20060602

REACTIONS (1)
  - GASTRIC CANCER [None]
